FAERS Safety Report 24527399 (Version 1)
Quarter: 2024Q4

REPORT INFORMATION
  Report Type: Report from Study
  Country: ES (occurrence: ES)
  Receive Date: 20241021
  Receipt Date: 20241021
  Transmission Date: 20250115
  Serious: Yes (Hospitalization, Other)
  Sender: SANOFI AVENTIS
  Company Number: None

PATIENT
  Age: 72 Year
  Sex: Female

DRUGS (10)
  1. AFLIBERCEPT [Suspect]
     Active Substance: AFLIBERCEPT
     Indication: Colorectal cancer metastatic
     Dosage: 220 MG,QCY
     Route: 041
     Dates: start: 20160225, end: 20160225
  2. AFLIBERCEPT [Suspect]
     Active Substance: AFLIBERCEPT
     Dosage: 220 MG,QCY
     Route: 041
     Dates: start: 20160323, end: 20160323
  3. IRINOTECAN [Suspect]
     Active Substance: IRINOTECAN
     Indication: Colorectal cancer metastatic
     Dosage: 273 MG,QCY
     Route: 041
     Dates: start: 20160225, end: 20160225
  4. IRINOTECAN [Suspect]
     Active Substance: IRINOTECAN
     Dosage: 273 MG,QCY
     Route: 041
     Dates: start: 20160323, end: 20160323
  5. LEUCOVORIN [Suspect]
     Active Substance: LEUCOVORIN\LEUCOVORIN CALCIUM
     Indication: Colorectal cancer metastatic
     Dosage: 608 MG,QCY
     Route: 041
     Dates: start: 20160225, end: 20160225
  6. LEUCOVORIN [Suspect]
     Active Substance: LEUCOVORIN\LEUCOVORIN CALCIUM
     Dosage: 608 MG,QCY
     Route: 041
     Dates: start: 20160323, end: 20160323
  7. FLUOROURACIL [Suspect]
     Active Substance: FLUOROURACIL
     Indication: Colorectal cancer metastatic
     Dosage: 608 MG,QCY
     Route: 040
     Dates: start: 20160225, end: 20160225
  8. FLUOROURACIL [Suspect]
     Active Substance: FLUOROURACIL
     Dosage: 3648 MG,QCY
     Route: 041
     Dates: start: 20160225, end: 20160225
  9. FLUOROURACIL [Suspect]
     Active Substance: FLUOROURACIL
     Dosage: 608 MG,QCY
     Route: 040
     Dates: start: 20160323, end: 20160323
  10. FLUOROURACIL [Suspect]
     Active Substance: FLUOROURACIL
     Dosage: 3648 MG,QCY
     Route: 041
     Dates: start: 20160323, end: 20160323

REACTIONS (7)
  - Diarrhoea [Recovered/Resolved]
  - Condition aggravated [Recovered/Resolved]
  - Condition aggravated [Recovered/Resolved]
  - Stomatitis [Recovered/Resolved]
  - Proctalgia [Recovered/Resolved]
  - Headache [Recovered/Resolved]
  - Leukocytosis [Recovered/Resolved]

NARRATIVE: CASE EVENT DATE: 20160329
